FAERS Safety Report 7037910-5 (Version None)
Quarter: 2010Q4

REPORT INFORMATION
  Report Type: 
  Country: None (occurrence: None)
  Receive Date: 20101011
  Receipt Date: 20101004
  Transmission Date: 20110411
  Serious: Yes (Other)
  Sender: FDA-Public Use
  Company Number: SE-TEVA-250781ISR

PATIENT
  Age: 57 Year
  Sex: Female

DRUGS (6)
  1. ALENDRONIC ACID [Suspect]
     Dates: start: 20010101
  2. OMEPRAZOLE [Suspect]
     Dosage: 20-40 MG/DAY
     Dates: start: 20000101
  3. CORTISONE [Suspect]
     Indication: RHEUMATOID ARTHRITIS
  4. CORTISONE [Suspect]
  5. PREDNISOLONE [Suspect]
  6. RISEDRONIC ACID [Suspect]

REACTIONS (2)
  - FALL [None]
  - FEMUR FRACTURE [None]
